FAERS Safety Report 18235474 (Version 1)
Quarter: 2020Q3

REPORT INFORMATION
  Report Type: Spontaneous
  Country: US (occurrence: US)
  Receive Date: 20200905
  Receipt Date: 20200905
  Transmission Date: 20201103
  Serious: No
  Sender: FDA-Public Use
  Company Number: US-ACCORD-164757

PATIENT
  Age: 50 Year
  Sex: Male
  Weight: 115.67 kg

DRUGS (2)
  1. NALTREXONE/NALTREXONE HYDROCHLORIDE [Suspect]
     Active Substance: NALTREXONE
     Indication: ALCOHOL ABUSE
     Dosage: ONE HALF TABLET ONCE A DAY FOR 2 WEEKS, HEN 50 MG ONCE DAILY
     Dates: start: 20191114
  2. ESCITALOPRAM [Suspect]
     Active Substance: ESCITALOPRAM OXALATE
     Indication: DEPRESSION
     Dosage: 20MG DAILY
     Dates: start: 201911

REACTIONS (2)
  - Diarrhoea [Recovered/Resolved]
  - Alcohol test false positive [Unknown]

NARRATIVE: CASE EVENT DATE: 201911
